FAERS Safety Report 17526783 (Version 1)
Quarter: 2020Q1

REPORT INFORMATION
  Report Type: Spontaneous
  Country: US (occurrence: US)
  Receive Date: 20200311
  Receipt Date: 20200311
  Transmission Date: 20200409
  Serious: Yes (Other)
  Sender: FDA-Public Use
  Company Number: US-ROCHE-2565604

PATIENT
  Age: 76 Year
  Sex: Female
  Weight: 58.11 kg

DRUGS (1)
  1. ALECENSA [Suspect]
     Active Substance: ALECTINIB HYDROCHLORIDE
     Indication: NON-SMALL CELL LUNG CANCER
     Route: 048
     Dates: start: 20180807

REACTIONS (1)
  - Metastasis [Recovering/Resolving]

NARRATIVE: CASE EVENT DATE: 201909
